FAERS Safety Report 9170956 (Version 1)
Quarter: 2013Q1

REPORT INFORMATION
  Report Type: Spontaneous
  Country: US (occurrence: None)
  Receive Date: 20130315
  Receipt Date: 20130315
  Transmission Date: 20140127
  Serious: Yes (Hospitalization)
  Sender: FDA-Public Use
  Company Number: None

PATIENT
  Sex: Female
  Weight: 65 kg

DRUGS (3)
  1. CYCLOPHOSPHAMIDE [Suspect]
     Dosage: PATIENT RECEIVED 1060 MG FOR 4 CYCLES FOR A TOTAL OF 4240 MG
     Dates: end: 20120613
  2. DOXORUBICIN HYDROCHLORIDE [Suspect]
     Dosage: PATIENT RECEIVED 106 MG FOR 4 CYCLES FOR A TOTAL OF 424 MG
     Dates: end: 20120613
  3. PACLITAXEL (TAXOL) [Suspect]
     Dosage: PATIENT RECEIVED 140 MG EACH WEEK FOR TWELVE WEEKS FOR A TOTAL OF 1680 MG
     Dates: end: 20120912

REACTIONS (5)
  - Tachycardia [None]
  - Brain natriuretic peptide increased [None]
  - Pulmonary embolism [None]
  - Pleural effusion [None]
  - Cardiac failure [None]
